FAERS Safety Report 5103725-8 (Version None)
Quarter: 2006Q3

REPORT INFORMATION
  Report Type: 
  Country: None (occurrence: None)
  Receive Date: 20060913
  Receipt Date: 20060710
  Transmission Date: 20061208
  Serious: Yes (Other)
  Sender: FDA-Public Use
  Company Number: FR-NOVOPROD-254836

PATIENT
  Age: 60 Year
  Sex: Female
  Weight: 101 kg

DRUGS (3)
  1. GLUCAGEN [Suspect]
     Indication: GLUCAGON TOLERANCE TEST
     Dosage: 1 MG, SINGLE
     Route: 042
     Dates: start: 20060613, end: 20060613
  2. GLUCAGEN [Suspect]
  3. STAGID [Concomitant]
     Dosage: 700 MG, QD

REACTIONS (2)
  - DEPRESSED LEVEL OF CONSCIOUSNESS [None]
  - HEADACHE [None]
